FAERS Safety Report 5105314-8 (Version None)
Quarter: 2006Q3

REPORT INFORMATION
  Report Type: 
  Country: None (occurrence: None)
  Receive Date: 20060912
  Receipt Date: 20060828
  Transmission Date: 20061208
  Serious: Yes (Hospitalization)
  Sender: FDA-Public Use
  Company Number: JP200608000519

PATIENT
  Age: 75 Year
  Sex: Female
  Weight: 50 kg

DRUGS (6)
  1. HUMALOG [Suspect]
     Indication: DIABETES MELLITUS NON-INSULIN-DEPENDENT
     Dates: start: 20060701
  2. HUMULIN R [Suspect]
     Indication: DRUG USE FOR UNKNOWN INDICATION
     Dosage: 50 U, DAILY (1/D), SUBCUTANEOUS; SEE IMAGE
     Route: 058
     Dates: start: 20060718
  3. HUMULIN N [Suspect]
     Indication: DRUG USE FOR UNKNOWN INDICATION
     Dosage: 10 U, DAILY (1/D), SUBCUTANEOUS
     Route: 058
     Dates: start: 20060721
  4. ELTACIN (GENTAMICIN SULFATE) [Concomitant]
  5. CEFOTAX (CEFOTAXIME SODIUM) [Concomitant]
  6. CALONAL (PARACETAMOL) [Concomitant]

REACTIONS (7)
  - ALANINE AMINOTRANSFERASE INCREASED [None]
  - ASPARTATE AMINOTRANSFERASE INCREASED [None]
  - BLOOD CREATINE PHOSPHOKINASE INCREASED [None]
  - DRUG INEFFECTIVE [None]
  - EOSINOPHIL COUNT INCREASED [None]
  - POLYMYALGIA RHEUMATICA [None]
  - PYREXIA [None]
